FAERS Safety Report 18279120 (Version 1)
Quarter: 2020Q3

REPORT INFORMATION
  Report Type: Spontaneous
  Country: NL (occurrence: NL)
  Receive Date: 20200917
  Receipt Date: 20200917
  Transmission Date: 20201103
  Serious: Yes (Disabling)
  Sender: FDA-Public Use
  Company Number: NL-009507513-2009NLD005375

PATIENT
  Sex: Male
  Weight: 90 kg

DRUGS (7)
  1. LORMETAZEPAM [Concomitant]
     Active Substance: LORMETAZEPAM
     Dosage: 2 MG DAILY
  2. SIMVASTATIN. [Suspect]
     Active Substance: SIMVASTATIN
     Dosage: 20 MILLIGRAM, QD, IN 2019 DOSE WAS INCREASED TO 20MG, DRUG PRESCRIBED BY PHYSICIAN: YES, FILM COATED
     Dates: start: 2019, end: 20200701
  3. METOPROLOL SUCCINATE. [Concomitant]
     Active Substance: METOPROLOL SUCCINATE
     Dosage: METOPROLOL RETARD TABLET
  4. SIMVASTATIN. [Suspect]
     Active Substance: SIMVASTATIN
     Indication: LOW DENSITY LIPOPROTEIN INCREASED
     Dosage: ONCE DAILY 10 MG, FILM COATED TABLET, DRUG PRESCRIBED BY PHYSICIAN: YES
     Dates: start: 2010
  5. AMITRIPTYLINE HYDROCHLORIDE. [Concomitant]
     Active Substance: AMITRIPTYLINE HYDROCHLORIDE
     Dosage: 100MG
  6. LISINOPRIL. [Concomitant]
     Active Substance: LISINOPRIL
     Dosage: 10MG
  7. ALPRAZOLAM. [Concomitant]
     Active Substance: ALPRAZOLAM
     Dosage: 2 MILLIGRAM, 1 MINUTE, RETARD TABLET (2MG DAILY)

REACTIONS (2)
  - Cognitive disorder [Not Recovered/Not Resolved]
  - Axonal neuropathy [Not Recovered/Not Resolved]
